FAERS Safety Report 4989878-0 (Version None)
Quarter: 2006Q2

REPORT INFORMATION
  Report Type: 
  Country: None (occurrence: None)
  Receive Date: 20060503
  Receipt Date: 20060418
  Transmission Date: 20061013
  Serious: Yes (Death, Hospitalization)
  Sender: FDA-Public Use
  Company Number: SE-JNJFOC-20030904697

PATIENT
  Age: 66 Year
  Sex: Female

DRUGS (15)
  1. REMICADE [Suspect]
     Route: 042
  2. REMICADE [Suspect]
     Indication: RHEUMATOID ARTHRITIS
     Route: 042
  3. METOPROLOL SUCCINATE [Concomitant]
     Route: 048
  4. LANACRIST [Concomitant]
     Route: 048
  5. WARAN [Concomitant]
     Route: 048
  6. IMUREL [Concomitant]
     Route: 048
  7. MIDAMOR [Concomitant]
     Route: 048
  8. PREDNISOLONE [Concomitant]
     Route: 048
  9. GLIBENCLAMIDE [Concomitant]
     Route: 048
  10. FUROSEMIDE [Concomitant]
     Route: 048
  11. ISOPTIN [Concomitant]
     Route: 048
  12. CALCICHEW D3 [Concomitant]
     Route: 048
  13. AVANDIA [Concomitant]
     Route: 048
  14. SALAZOPYRIN [Concomitant]
     Route: 065
  15. HYDROXYCHLOROQUIN [Concomitant]
     Route: 065

REACTIONS (3)
  - ALVEOLITIS FIBROSING [None]
  - LUNG INFECTION [None]
  - PNEUMONITIS [None]
